FAERS Safety Report 6492998-5 (Version None)
Quarter: 2009Q4

REPORT INFORMATION
  Report Type: 
  Country: None (occurrence: None)
  Receive Date: 20091214
  Receipt Date: 20091203
  Transmission Date: 20100525
  Serious: Yes (Other)
  Sender: FDA-Public Use
  Company Number: DE-ASTRAZENECA-2009SE30414

PATIENT
  Age: 58 Year
  Sex: Male

DRUGS (6)
  1. CASODEX [Suspect]
     Route: 048
  2. BICANORM [Suspect]
  3. INSULIN [Concomitant]
  4. PANTOPRAZOLE [Concomitant]
  5. RAMIPRIL [Concomitant]
  6. CYCLOSPORINE [Concomitant]

REACTIONS (3)
  - OVERDOSE [None]
  - VOMITING [None]
  - WRONG DRUG ADMINISTERED [None]
